FAERS Safety Report 6778075-4 (Version None)
Quarter: 2010Q2

REPORT INFORMATION
  Report Type: 
  Country: None (occurrence: None)
  Receive Date: 20100618
  Receipt Date: 20100609
  Transmission Date: 20101027
  Serious: No
  Sender: FDA-Public Use
  Company Number: US-BIOGENIDEC-2010BI020065

PATIENT
  Sex: Male

DRUGS (3)
  1. TYSABRI [Suspect]
     Indication: MULTIPLE SCLEROSIS
     Route: 042
     Dates: start: 20080101, end: 20080101
  2. TYSABRI [Suspect]
     Route: 042
     Dates: start: 20100501
  3. BENADRYL [Concomitant]

REACTIONS (2)
  - DRUG HYPERSENSITIVITY [None]
  - INSOMNIA [None]
